FAERS Safety Report 9157144 (Version 5)
Quarter: 2013Q2

REPORT INFORMATION
  Report Type: Report from Study
  Country: DK (occurrence: DK)
  Receive Date: 20130312
  Receipt Date: 20130524
  Transmission Date: 20140414
  Serious: Yes (Death, Life-Threatening, Hospitalization)
  Sender: FDA-Public Use
  Company Number: DK-SANOFI-AVENTIS-2013SA023832

PATIENT
  Age: 63 Year
  Sex: Male
  Weight: 100 kg

DRUGS (7)
  1. DOCETAXEL [Suspect]
     Indication: PROSTATE CANCER METASTATIC
     Route: 042
     Dates: start: 20130221, end: 20130221
  2. PREDNISOLONE [Suspect]
     Indication: PROSTATE CANCER METASTATIC
     Route: 048
     Dates: start: 20130221, end: 20130227
  3. IBUMETIN [Concomitant]
     Route: 048
     Dates: start: 20100204
  4. PARACETAMOL [Concomitant]
     Route: 048
  5. PANTOPRAZOLE [Concomitant]
     Route: 048
  6. ACETYLSALICYLIC ACID [Concomitant]
     Indication: PROPHYLAXIS
     Route: 048
     Dates: start: 2003
  7. XGEVA [Concomitant]
     Indication: PROPHYLAXIS
     Route: 003
     Dates: start: 20120802

REACTIONS (1)
  - Necrotising colitis [Fatal]
